FAERS Safety Report 6100044-8 (Version None)
Quarter: 2009Q1

REPORT INFORMATION
  Report Type: 
  Country: None (occurrence: None)
  Receive Date: 20090303
  Receipt Date: 20090224
  Transmission Date: 20090719
  Serious: Yes (Hospitalization, Other)
  Sender: FDA-Public Use
  Company Number: B0561034A

PATIENT
  Age: 11 Year
  Sex: Male

DRUGS (1)
  1. RELENZA [Suspect]
     Indication: INFLUENZA
     Dosage: 5MG TWICE PER DAY
     Route: 055
     Dates: start: 20090207, end: 20090210

REACTIONS (4)
  - ALTERED STATE OF CONSCIOUSNESS [None]
  - DELIRIUM [None]
  - ENCEPHALITIS [None]
  - SOMNOLENCE [None]
